FAERS Safety Report 25953648 (Version 1)
Quarter: 2025Q4

REPORT INFORMATION
  Report Type: Spontaneous
  Country: US (occurrence: US)
  Receive Date: 20251023
  Receipt Date: 20251023
  Transmission Date: 20260118
  Serious: No
  Sender: ANI
  Company Number: US-ANIPHARMA-2025-US-032061

PATIENT
  Age: 46 Year
  Sex: Female
  Weight: 90.72 kg

DRUGS (1)
  1. CORTICOTROPIN [Suspect]
     Active Substance: CORTICOTROPIN
     Indication: Rheumatoid arthritis
     Dosage: ONE INJECTION 80 UNITS DAILY FOR 21 DAYS
     Route: 058
     Dates: start: 20250630, end: 20250703

REACTIONS (10)
  - Headache [Recovering/Resolving]
  - Dysphagia [Recovered/Resolved]
  - Swelling [Not Recovered/Not Resolved]
  - Dizziness [Recovered/Resolved]
  - Balance disorder [Recovered/Resolved]
  - Hypersensitivity [Recovering/Resolving]
  - Paraesthesia [Recovered/Resolved]
  - Swelling face [Not Recovered/Not Resolved]
  - Feeling hot [Recovered/Resolved]
  - Dyspnoea [Recovered/Resolved]

NARRATIVE: CASE EVENT DATE: 20250630
